FAERS Safety Report 8277667-3 (Version None)
Quarter: 2012Q1

REPORT INFORMATION
  Report Type: 
  Country: None (occurrence: None)
  Receive Date: 20120312
  Receipt Date: 20120127
  Transmission Date: 20120608
  Serious: No
  Sender: FDA-Public Use
  Company Number: 2012SP005297

PATIENT
  Age: 52 Year
  Sex: Female

DRUGS (6)
  1. ZOLOFT [Concomitant]
  2. SAPHRIS [Suspect]
     Indication: INSOMNIA
     Dosage: 5 MG;QD;SL
     Route: 060
     Dates: start: 20120123, end: 20120124
  3. ZOCOR [Concomitant]
  4. NEURONTIN [Concomitant]
  5. PROVIGIL [Concomitant]
  6. FLEXERIL [Concomitant]

REACTIONS (2)
  - HEART RATE INCREASED [None]
  - INSOMNIA [None]
